FAERS Safety Report 22278328 (Version 1)
Quarter: 2023Q2

REPORT INFORMATION
  Report Type: Spontaneous
  Country: NL (occurrence: None)
  Receive Date: 20230503
  Receipt Date: 20230503
  Transmission Date: 20230721
  Serious: Yes (Hospitalization)
  Sender: FDA-Public Use
  Company Number: None

PATIENT
  Sex: Male
  Weight: 80 kg

DRUGS (10)
  1. OBINUTUZUMAB [Suspect]
     Active Substance: OBINUTUZUMAB
     Indication: Chronic lymphocytic leukaemia
     Dosage: VOLGENS SCHEMA
     Route: 065
     Dates: start: 20221011
  2. CLOPIDOGREL [Concomitant]
     Active Substance: CLOPIDOGREL BISULFATE
     Dosage: TABLET, 75 MG (MILLIGRAM)
  3. ROSUVASTATIN [Concomitant]
     Active Substance: ROSUVASTATIN
     Dosage: TABLET, 5 MG (MILLIGRAM)
  4. NITROGLYCERIN [Concomitant]
     Active Substance: NITROGLYCERIN
     Dosage: ZN
  5. PANTOPRAZOLE SODIUM [Concomitant]
     Active Substance: PANTOPRAZOLE SODIUM
     Dosage: MAAGSAPRESISTENTE TABLET, 40 MG (MILLIGRAM)
  6. CHOLECALCIFEROL [Concomitant]
     Active Substance: CHOLECALCIFEROL
     Dosage: DRANK
  7. AMLODIPINE [Concomitant]
     Active Substance: AMLODIPINE BESYLATE
     Dosage: TABLET, 5 MG (MILLIGRAM)
  8. BISOPROLOL [Concomitant]
     Active Substance: BISOPROLOL
     Dosage: TABLET, 2,5 MG (MILLIGRAM)
  9. CARBASPIRIN CALCIUM [Concomitant]
     Active Substance: CARBASPIRIN CALCIUM
     Dosage: 100MG
  10. LISINOPRIL [Concomitant]
     Active Substance: LISINOPRIL
     Dosage: TABLET, 10 MG (MILLIGRAM)

REACTIONS (1)
  - Pneumonitis [Not Recovered/Not Resolved]
